FAERS Safety Report 9986749 (Version 1)
Quarter: 2014Q1

REPORT INFORMATION
  Report Type: Spontaneous
  Country: US (occurrence: US)
  Receive Date: 20140307
  Receipt Date: 20140307
  Transmission Date: 20141002
  Serious: No
  Sender: FDA-Public Use
  Company Number: US-ABBVIE-13P-163-1081294-00

PATIENT
  Age: 61 Year
  Sex: Female

DRUGS (17)
  1. HUMIRA [Suspect]
     Indication: PSORIASIS
     Dates: start: 2008, end: 201304
  2. ASPIRIN [Concomitant]
     Indication: HYPERTENSION
  3. ATENOLOL [Concomitant]
     Indication: HYPERTENSION
  4. BRIMODINE OPTH [Concomitant]
     Indication: PRODUCT USED FOR UNKNOWN INDICATION
  5. OFF CAL [Concomitant]
     Indication: PRODUCT USED FOR UNKNOWN INDICATION
  6. VITAMIN D [Concomitant]
     Indication: VITAMIN SUPPLEMENTATION
  7. PREPRO [Concomitant]
     Indication: HORMONE REPLACEMENT THERAPY
  8. DEPAKOTE [Concomitant]
     Indication: CONVULSION
  9. FERROUS GLUCONATE [Concomitant]
     Indication: BLOOD IRON
  10. FLONASE [Concomitant]
     Indication: HYPERSENSITIVITY
  11. NOVOLOG [Concomitant]
     Indication: DIABETES MELLITUS
  12. LISINOPRIL [Concomitant]
     Indication: HYPERTENSION
  13. SINGULAIR [Concomitant]
     Indication: PRODUCT USED FOR UNKNOWN INDICATION
  14. MVI [Concomitant]
     Indication: VITAMIN SUPPLEMENTATION
  15. METAMUCIL [Concomitant]
     Indication: SUPPLEMENTATION THERAPY
  16. VENLAFAXINE [Concomitant]
     Indication: PRODUCT USED FOR UNKNOWN INDICATION
  17. CLARITIN [Concomitant]
     Indication: HYPERSENSITIVITY

REACTIONS (1)
  - Platelet count decreased [Not Recovered/Not Resolved]
